FAERS Safety Report 6978826-X (Version None)
Quarter: 2010Q3

REPORT INFORMATION
  Report Type: 
  Country: None (occurrence: None)
  Receive Date: 20100913
  Receipt Date: 20100901
  Transmission Date: 20110219
  Serious: Yes (Hospitalization)
  Sender: FDA-Public Use
  Company Number: GXKR2010DK10007

PATIENT
  Sex: Male

DRUGS (1)
  1. VIBRADOX (NGX) [Suspect]
     Indication: LUNG INFECTION
     Dosage: 100 MG, BID
     Route: 048
     Dates: start: 20100730, end: 20100801

REACTIONS (1)
  - STEVENS-JOHNSON SYNDROME [None]
